FAERS Safety Report 12877246 (Version 1)
Quarter: 2016Q4

REPORT INFORMATION
  Report Type: Spontaneous
  Country: US (occurrence: US)
  Receive Date: 20161023
  Receipt Date: 20161023
  Transmission Date: 20170207
  Serious: No
  Sender: FDA-Public Use
  Company Number: None

PATIENT
  Age: 76 Year
  Weight: 76.5 kg

DRUGS (2)
  1. HUMIRA [Suspect]
     Active Substance: ADALIMUMAB
     Indication: ARTHRITIS
     Dosage: ?          QUANTITY:1 INJECTION(S);OTHER FREQUENCY:1 PER 10 DAYS;?
     Route: 055
     Dates: start: 20141213
  2. HUMIRA [Suspect]
     Active Substance: ADALIMUMAB
     Indication: SARCOIDOSIS
     Dosage: ?          QUANTITY:1 INJECTION(S);OTHER FREQUENCY:1 PER 10 DAYS;?
     Route: 055
     Dates: start: 20141213

REACTIONS (5)
  - Needle issue [None]
  - Injection site pain [None]
  - Injection site mass [None]
  - Injection site haemorrhage [None]
  - Wrong technique in product usage process [None]

NARRATIVE: CASE EVENT DATE: 20161023
